FAERS Safety Report 15538553 (Version 2)
Quarter: 2018Q4

REPORT INFORMATION
  Report Type: Spontaneous
  Country: IT (occurrence: IT)
  Receive Date: 20181022
  Receipt Date: 20181029
  Transmission Date: 20190205
  Serious: Yes (Death, Other)
  Sender: FDA-Public Use
  Company Number: IT-SHIRE-IT201839967

PATIENT

DRUGS (5)
  1. VINCRISTINE [Concomitant]
     Active Substance: VINCRISTINE
     Indication: PRODUCT USED FOR UNKNOWN INDICATION
  2. PEGASPARGASE [Suspect]
     Active Substance: PEGASPARGASE
     Indication: LYMPHOMA
  3. PONATINIB [Concomitant]
     Active Substance: PONATINIB
     Indication: PRODUCT USED FOR UNKNOWN INDICATION
  4. PEGASPARGASE [Suspect]
     Active Substance: PEGASPARGASE
     Indication: LYMPHOCYTIC LEUKAEMIA
     Dosage: 1800 IU, UNK
     Route: 042
     Dates: start: 20180925, end: 20180925
  5. PEGASPARGASE [Suspect]
     Active Substance: PEGASPARGASE
     Indication: CANCER IN REMISSION

REACTIONS (5)
  - Hypofibrinogenaemia [Fatal]
  - Abdominal pain [Fatal]
  - Cardiac arrest [Fatal]
  - Lipase increased [Fatal]
  - Amylase increased [Fatal]

NARRATIVE: CASE EVENT DATE: 20181006
